FAERS Safety Report 20233157 (Version 1)
Quarter: 2021Q4

REPORT INFORMATION
  Report Type: Spontaneous
  Country: GB (occurrence: GB)
  Receive Date: 20211227
  Receipt Date: 20211227
  Transmission Date: 20220303
  Serious: Yes (Hospitalization)
  Sender: FDA-Public Use
  Company Number: None

PATIENT
  Age: 73 Year
  Sex: Female

DRUGS (6)
  1. OMEPRAZOLE [Suspect]
     Active Substance: OMEPRAZOLE
  2. AMITRIPTYLINE [Concomitant]
     Active Substance: AMITRIPTYLINE
     Dosage: 25MG TABLETS ONE TO BE TAKEN EACH NIGHT OR AS NEEDED.
  3. AMLODIPINE [Concomitant]
     Active Substance: AMLODIPINE BESYLATE
     Dosage: 10MG TABLETS ONE TO BE TAKEN EACH DAY
  4. DOXAZOSIN [Concomitant]
     Active Substance: DOXAZOSIN MESYLATE
     Dosage: 4MG TABLETS ONE TO BE TAKEN IN THE MORNING AND ONE TO BE TAKEN AT TEA TIME. 56 TABLET -INCREASED
  5. LACTULOSE [Concomitant]
     Active Substance: LACTULOSE
     Dosage: 3.1-3.7G/5ML ORAL SOLUTION THREE 5ML SPOONFUL TO BE TAKEN TWICE A DAY FOR CONSTIPATION PRN.
  6. LORATADINE [Concomitant]
     Active Substance: LORATADINE
     Dosage: 11-JUN-2021 LORATADINE 10MG TABLETS ONE TO BE TAKEN EACH DAY 30 TABLET
     Dates: start: 20210611

REACTIONS (1)
  - Tubulointerstitial nephritis [Unknown]
